FAERS Safety Report 9013242 (Version 1)
Quarter: 2013Q1

REPORT INFORMATION
  Report Type: Spontaneous
  Country: IT (occurrence: IT)
  Receive Date: 20130114
  Receipt Date: 20130114
  Transmission Date: 20140127
  Serious: Yes (Hospitalization)
  Sender: FDA-Public Use
  Company Number: IT-TEVA-379246ISR

PATIENT
  Age: 68 None
  Sex: Female

DRUGS (2)
  1. CARBOPLATINO TEVA [Suspect]
     Indication: UTERINE CANCER
     Dosage: 240.9 MILLIGRAM DAILY;
     Route: 042
     Dates: start: 20121227, end: 20121227
  2. PACLITAXEL TEVA [Suspect]
     Indication: UTERINE CANCER
     Dosage: 278 MILLIGRAM DAILY;
     Route: 042
     Dates: start: 20121227, end: 20121227

REACTIONS (3)
  - Stevens-Johnson syndrome [Recovering/Resolving]
  - Conjunctivitis [Recovering/Resolving]
  - Transaminases increased [Recovering/Resolving]
